FAERS Safety Report 5316638-3 (Version None)
Quarter: 2007Q2

REPORT INFORMATION
  Report Type: 
  Country: None (occurrence: None)
  Receive Date: 20070504
  Receipt Date: 20070427
  Transmission Date: 20071010
  Serious: Yes (Death)
  Sender: FDA-Public Use
  Company Number: AT-BRISTOL-MYERS SQUIBB COMPANY-13764857

PATIENT
  Age: 83 Year
  Sex: Female

DRUGS (1)
  1. MAXIPIME [Suspect]
     Indication: RESPIRATORY TRACT INFECTION
     Dates: start: 19990930, end: 19991011

REACTIONS (1)
  - CARDIAC FAILURE [None]
